FAERS Safety Report 5523545-X (Version None)
Quarter: 2007Q4

REPORT INFORMATION
  Report Type: 
  Country: None (occurrence: None)
  Receive Date: 20071119
  Receipt Date: 20071119
  Transmission Date: 20080405
  Serious: Yes (Life-Threatening, Hospitalization, Other)
  Sender: FDA-Public Use
  Company Number: None

PATIENT
  Age: 48 Year
  Sex: Female
  Weight: 70.3075 kg

DRUGS (1)
  1. IXEMPRA BRISTOL-MYERS SQUIBB [Suspect]
     Dates: start: 20071106, end: 20071106

REACTIONS (12)
  - BLOOD BILIRUBIN INCREASED [None]
  - BLOOD LACTIC ACID INCREASED [None]
  - BLOOD PRESSURE DECREASED [None]
  - DEHYDRATION [None]
  - DRUG TOXICITY [None]
  - HEART RATE INCREASED [None]
  - HEPATIC ENZYME INCREASED [None]
  - NECROTISING COLITIS [None]
  - NEUTROPENIC COLITIS [None]
  - PALMAR-PLANTAR ERYTHRODYSAESTHESIA SYNDROME [None]
  - SEPTIC SHOCK [None]
  - WHITE BLOOD CELL COUNT DECREASED [None]
